FAERS Safety Report 23397670 (Version 1)
Quarter: 2024Q1

REPORT INFORMATION
  Report Type: Other
  Country: CN (occurrence: CN)
  Receive Date: 20240112
  Receipt Date: 20240112
  Transmission Date: 20240409
  Serious: Yes (Other)
  Sender: FDA-Public Use
  Company Number: CN-GE HEALTHCARE-2024CSU000301

PATIENT
  Age: 15 Month
  Sex: Male

DRUGS (2)
  1. OMNIPAQUE [Suspect]
     Active Substance: IOHEXOL
     Indication: Diagnostic procedure
     Dosage: 40 MG, TOTAL
     Route: 041
     Dates: start: 20231008, end: 20231012
  2. OMNIPAQUE [Suspect]
     Active Substance: IOHEXOL
     Indication: Acute lymphocytic leukaemia

REACTIONS (1)
  - Myelosuppression [Recovering/Resolving]

NARRATIVE: CASE EVENT DATE: 20231102
